FAERS Safety Report 9292571 (Version 2)
Quarter: 2013Q2

REPORT INFORMATION
  Report Type: Spontaneous
  Country: IT (occurrence: IT)
  Receive Date: 20130516
  Receipt Date: 20130522
  Transmission Date: 20140414
  Serious: Yes (Hospitalization)
  Sender: FDA-Public Use
  Company Number: IT-SANOFI-AVENTIS-2013SA047437

PATIENT
  Age: 85 Year
  Sex: Female

DRUGS (7)
  1. PLAQUENIL [Suspect]
     Indication: SERONEGATIVE ARTHRITIS
     Route: 048
     Dates: start: 20130221, end: 20130228
  2. FOSAVANCE [Suspect]
     Indication: PRODUCT USED FOR UNKNOWN INDICATION
     Route: 048
     Dates: start: 20130223, end: 20130309
  3. BISOPROLOL HEMIFUMARATE [Concomitant]
     Route: 048
  4. HYDROCHLOROTHIAZIDE/LOSARTAN POTASSIUM [Concomitant]
     Route: 048
  5. LANSOPRAZOLE [Concomitant]
  6. COUMADIN [Concomitant]
     Dosage: STRENGTH:5MG
     Route: 048
  7. EUTIROX [Concomitant]
     Dosage: 50 MCG TABLETS
     Route: 048

REACTIONS (7)
  - Erythema annulare [Recovering/Resolving]
  - Rash pustular [Recovering/Resolving]
  - Skin exfoliation [Recovering/Resolving]
  - Drug reaction with eosinophilia and systemic symptoms [Recovering/Resolving]
  - Face oedema [Recovering/Resolving]
  - Anaemia [Recovering/Resolving]
  - Thrombocytopenia [Recovering/Resolving]
